FAERS Safety Report 7945827-4 (Version None)
Quarter: 2011Q4

REPORT INFORMATION
  Report Type: 
  Country: None (occurrence: None)
  Receive Date: 20111129
  Receipt Date: 20111124
  Transmission Date: 20120403
  Serious: Yes (Hospitalization)
  Sender: FDA-Public Use
  Company Number: AU-ABBOTT-11P-008-0877706-00

PATIENT
  Age: 45 Year
  Sex: Male

DRUGS (1)
  1. VALPROATE SODIUM [Suspect]
     Indication: BIPOLAR DISORDER

REACTIONS (1)
  - PLEURAL EFFUSION [None]
